FAERS Safety Report 11165628 (Version 6)
Quarter: 2019Q1

REPORT INFORMATION
  Report Type: Spontaneous
  Country: US (occurrence: US)
  Receive Date: 20150604
  Receipt Date: 20190219
  Transmission Date: 20190417
  Serious: No
  Sender: FDA-Public Use
  Company Number: US-PFIZER INC-2015184675

PATIENT
  Sex: Female
  Weight: 59.87 kg

DRUGS (4)
  1. LYRICA [Suspect]
     Active Substance: PREGABALIN
     Indication: NEURALGIA
     Dosage: 25 MG, 4X/DAY (1 IN MORNING, 1 IN AFTERNOON AND 2 AT BEDTIME)
     Route: 048
  2. LYRICA [Suspect]
     Active Substance: PREGABALIN
     Indication: BURNING SENSATION
     Dosage: 50 MG, UNK
  3. IBUPROFEN. [Concomitant]
     Active Substance: IBUPROFEN
     Indication: BURNING SENSATION
     Dosage: UNK
  4. LYRICA [Suspect]
     Active Substance: PREGABALIN
     Dosage: 100 MG, DAILY (1 PO BID + 2 HS )
     Route: 048

REACTIONS (7)
  - General physical health deterioration [Unknown]
  - Intentional product misuse [Unknown]
  - Expired product administered [Unknown]
  - Product use issue [Unknown]
  - Somnolence [Unknown]
  - Impaired driving ability [Unknown]
  - Pain [Unknown]

NARRATIVE: CASE EVENT DATE: 2017
